FAERS Safety Report 6056886-0 (Version None)
Quarter: 2009Q1

REPORT INFORMATION
  Report Type: 
  Country: None (occurrence: None)
  Receive Date: 20090129
  Receipt Date: 20090119
  Transmission Date: 20090719
  Serious: Yes (Life-Threatening)
  Sender: FDA-Public Use
  Company Number: B0554790A

PATIENT
  Age: 54 Year
  Sex: Male

DRUGS (5)
  1. STAMARIL [Suspect]
     Indication: FOREIGN TRAVEL
     Route: 058
     Dates: start: 20081118, end: 20081118
  2. REVAXIS [Suspect]
     Indication: FOREIGN TRAVEL
     Route: 030
     Dates: start: 20081118, end: 20081118
  3. VIVAX [Suspect]
     Indication: FOREIGN TRAVEL
     Route: 030
     Dates: start: 20081118, end: 20081118
  4. STATINS [Concomitant]
     Route: 065
  5. OMEPRAZOLE [Concomitant]
     Route: 065

REACTIONS (1)
  - ANAPHYLACTIC REACTION [None]
